APPROVED DRUG PRODUCT: EMTRICITABINE AND TENOFOVIR DISOPROXIL FUMARATE
Active Ingredient: EMTRICITABINE; TENOFOVIR DISOPROXIL FUMARATE
Strength: 200MG;300MG
Dosage Form/Route: TABLET;ORAL
Application: A208740 | Product #001
Applicant: APOTEX INC
Approved: Jun 16, 2021 | RLD: No | RS: No | Type: DISCN